FAERS Safety Report 5490272-7 (Version None)
Quarter: 2007Q4

REPORT INFORMATION
  Report Type: 
  Country: None (occurrence: None)
  Receive Date: 20071015
  Receipt Date: 20070702
  Transmission Date: 20080405
  Serious: No
  Sender: FDA-Public Use
  Company Number: 2007SP002431

PATIENT
  Age: 53 Year
  Sex: Female
  Weight: 72.5755 kg

DRUGS (5)
  1. LUNESTA [Suspect]
     Indication: INSOMNIA
     Dosage: 2 MG; HS; ORAL, 3 MG; HS; ORAL, 4 MG; HS; ORAL
     Route: 048
     Dates: start: 20070601, end: 20070601
  2. LUNESTA [Suspect]
     Indication: INSOMNIA
     Dosage: 2 MG; HS; ORAL, 3 MG; HS; ORAL, 4 MG; HS; ORAL
     Route: 048
     Dates: start: 20070607, end: 20070601
  3. LUNESTA [Suspect]
     Indication: INSOMNIA
     Dosage: 2 MG; HS; ORAL, 3 MG; HS; ORAL, 4 MG; HS; ORAL
     Route: 048
     Dates: start: 20070601, end: 20070614
  4. XANAX [Concomitant]
  5. CRESTOR [Concomitant]

REACTIONS (1)
  - INSOMNIA [None]
